FAERS Safety Report 9956777 (Version 1)
Quarter: 2014Q1

REPORT INFORMATION
  Report Type: Report from Study
  Country: US (occurrence: US)
  Receive Date: 20140304
  Receipt Date: 20140304
  Transmission Date: 20141002
  Serious: No
  Sender: FDA-Public Use
  Company Number: US-ABBVIE-13P-163-1096249-00

PATIENT
  Age: 29 Year
  Sex: Female

DRUGS (2)
  1. HUMIRA [Suspect]
     Indication: CROHN^S DISEASE
     Dates: start: 201211
  2. CYMBALTA [Interacting]
     Indication: PRODUCT USED FOR UNKNOWN INDICATION

REACTIONS (7)
  - Osteoporosis [Unknown]
  - Injection site bruising [Recovering/Resolving]
  - Anxiety [Unknown]
  - Vitamin D deficiency [Unknown]
  - Drug interaction [Unknown]
  - Rash [Unknown]
  - Pruritus [Unknown]
